FAERS Safety Report 4382784-4 (Version None)
Quarter: 2004Q2

REPORT INFORMATION
  Report Type: 
  Country: None (occurrence: None)
  Receive Date: 20040617
  Receipt Date: 20040607
  Transmission Date: 20050107
  Serious: Yes (Hospitalization, Other)
  Sender: FDA-Public Use
  Company Number: HQWYE384309JUN04

PATIENT
  Age: 69 Year
  Sex: Male
  Weight: 83.99 kg

DRUGS (1)
  1. ADVIL [Suspect]
     Indication: ARTHRALGIA
     Dosage: SEE IMAGE
     Route: 048
     Dates: start: 20040602, end: 20040602

REACTIONS (3)
  - ANAPHYLACTIC SHOCK [None]
  - DRUG HYPERSENSITIVITY [None]
  - RESPIRATORY ARREST [None]
